FAERS Safety Report 13890713 (Version 5)
Quarter: 2018Q1

REPORT INFORMATION
  Report Type: Spontaneous
  Country: US (occurrence: US)
  Receive Date: 20170822
  Receipt Date: 20180222
  Transmission Date: 20180508
  Serious: Yes (Hospitalization, Other)
  Sender: FDA-Public Use
  Company Number: US-UNITED THERAPEUTICS-UNT-2017-012079

PATIENT
  Age: 78 Year
  Sex: Male
  Weight: 86.17 kg

DRUGS (12)
  1. BERAPROST SODIUM [Suspect]
     Active Substance: BERAPROST SODIUM
     Indication: PULMONARY ARTERIAL HYPERTENSION
     Dosage: 30 ?G, QID
     Route: 048
     Dates: start: 20170622
  2. COUMADIN [Concomitant]
     Active Substance: WARFARIN SODIUM
     Indication: THROMBOSIS PROPHYLAXIS
     Dosage: 5 MG TOTAL DAILY DOSE
     Route: 048
     Dates: start: 2011
  3. TYVASO [Suspect]
     Active Substance: TREPROSTINIL
     Indication: PULMONARY HYPERTENSION
     Dosage: 18-72 MICROGRAMS, QID
     Dates: start: 20170310
  4. TYVASO [Suspect]
     Active Substance: TREPROSTINIL
     Dosage: 72 ?G, QID
     Dates: start: 20170315
  5. CELLCEPT [Concomitant]
     Active Substance: MYCOPHENOLATE MOFETIL\MYCOPHENOLATE MOFETIL HYDROCHLORIDE
     Indication: INTERSTITIAL LUNG DISEASE
     Dosage: 1000 MG TOTAL DAILY DOSE
     Route: 048
     Dates: start: 201702
  6. SORIATANE [Concomitant]
     Active Substance: ACITRETIN
     Indication: PSORIATIC ARTHROPATHY
     Dosage: 25 MG TOTAL DAILY DOSE
     Route: 048
     Dates: start: 2015
  7. CALCIPOTRIENE. [Concomitant]
     Active Substance: CALCIPOTRIENE
     Indication: PSORIASIS
     Dosage: 0.005 % TOTAL DAILY DOSE
     Route: 061
     Dates: start: 2016
  8. TRIAMCINOLON                       /00031901/ [Concomitant]
     Indication: PSORIASIS
     Dosage: 0.1% TOTAL DAILY DOSE
     Route: 061
     Dates: start: 2016
  9. TYVASO [Suspect]
     Active Substance: TREPROSTINIL
     Indication: PULMONARY ARTERIAL HYPERTENSION
     Dosage: UNK
  10. AMLODIPINE [Concomitant]
     Active Substance: AMLODIPINE BESYLATE
     Indication: HYPERTENSION
     Dosage: 10 MG TOTAL DAILY DOSE
     Route: 048
     Dates: start: 1998
  11. DERMAZENE [Concomitant]
     Active Substance: HYDROCORTISONE\IODOQUINOL
     Indication: PSORIASIS
     Dosage: 1 % TOTAL DAILY DOSE
     Route: 061
     Dates: start: 2016
  12. METOPROLOL. [Concomitant]
     Active Substance: METOPROLOL
     Indication: HYPERTENSION
     Dosage: 50 MG TOTAL DAILY DOSE
     Route: 048
     Dates: start: 2011

REACTIONS (2)
  - Cerebrovascular accident [Recovered/Resolved]
  - Off label use [Unknown]

NARRATIVE: CASE EVENT DATE: 20170813
